FAERS Safety Report 10061155 (Version 1)
Quarter: 2014Q2

REPORT INFORMATION
  Report Type: Spontaneous
  Country: AU (occurrence: AU)
  Receive Date: 20140407
  Receipt Date: 20140407
  Transmission Date: 20141212
  Serious: Yes (Death, Life-Threatening, Other)
  Sender: FDA-Public Use
  Company Number: 2014SP000678

PATIENT
  Age: 13 Month
  Sex: Male
  Weight: 11 kg

DRUGS (9)
  1. CYTARABINE [Suspect]
     Indication: ACUTE MONOCYTIC LEUKAEMIA
     Route: 065
     Dates: start: 20131208
  2. MITOXANTRONE [Suspect]
     Indication: ACUTE MONOCYTIC LEUKAEMIA
     Route: 065
     Dates: start: 20140106
  3. DAUNORUBICIN HCL [Suspect]
     Indication: ACUTE MONOCYTIC LEUKAEMIA
     Route: 065
     Dates: start: 20131208
  4. ETOPOSIDE [Suspect]
     Indication: ACUTE MONOCYTIC LEUKAEMIA
     Route: 065
     Dates: start: 20131208
  5. SULFAMETHOXAZOLE [Concomitant]
  6. TRIMETHOPRIM [Concomitant]
  7. VORICONAZOLE [Concomitant]
  8. PARACETAMOL [Concomitant]
  9. OXYCODONE [Concomitant]

REACTIONS (3)
  - Disease progression [Fatal]
  - Acute monocytic leukaemia [Fatal]
  - Treatment failure [Fatal]
